FAERS Safety Report 8293447-7 (Version None)
Quarter: 2012Q2

REPORT INFORMATION
  Report Type: 
  Country: None (occurrence: None)
  Receive Date: 20120417
  Receipt Date: 20120411
  Transmission Date: 20120825
  Serious: Yes (Hospitalization, Disabling, Other)
  Sender: FDA-Public Use
  Company Number: US-MERCK-1103USA00935

PATIENT
  Age: 68 Year
  Sex: Female

DRUGS (6)
  1. FOSAMAX [Suspect]
     Indication: OSTEOPENIA
     Route: 048
     Dates: start: 20000101, end: 20000101
  2. FOSAMAX [Suspect]
     Route: 048
     Dates: start: 20010101, end: 20080101
  3. ALENDRONATE SODIUM [Suspect]
     Indication: OSTEOPENIA
     Route: 048
     Dates: start: 20080101
  4. MULTI-VITAMINS [Concomitant]
     Indication: OSTEOPENIA
     Route: 065
  5. FOSAMAX [Suspect]
     Route: 048
     Dates: start: 20080101, end: 20100101
  6. FOSAMAX [Suspect]
     Route: 048
     Dates: start: 20000101, end: 20000101

REACTIONS (12)
  - GALLBLADDER DISORDER [None]
  - STRESS FRACTURE [None]
  - FRACTURE [None]
  - OSTEOPOROSIS [None]
  - LOW TURNOVER OSTEOPATHY [None]
  - WRIST FRACTURE [None]
  - BLOOD CHOLESTEROL INCREASED [None]
  - FEMUR FRACTURE [None]
  - LUMBAR RADICULOPATHY [None]
  - ADVERSE EVENT [None]
  - SKIN CANCER [None]
  - CATARACT [None]
